FAERS Safety Report 9095964 (Version 1)
Quarter: 2013Q1

REPORT INFORMATION
  Report Type: Spontaneous
  Country: US (occurrence: US)
  Receive Date: 20130204
  Receipt Date: 20130204
  Transmission Date: 20140127
  Serious: No
  Sender: FDA-Public Use
  Company Number: US-009507513-1302USA000591

PATIENT
  Sex: 0

DRUGS (2)
  1. AZASITE [Suspect]
     Dosage: 1 GTT, BID, 1% 1 BOTTLE OF 2.5
     Route: 047
     Dates: start: 20130128, end: 20130129
  2. AZASITE [Suspect]
     Dosage: 1 GTT, QD, 1% 1 BOTTLE OF 2.5
     Route: 047
     Dates: start: 20130130

REACTIONS (3)
  - Inappropriate schedule of drug administration [Unknown]
  - Off label use [Unknown]
  - No adverse event [Unknown]
